FAERS Safety Report 22944060 (Version 2)
Quarter: 2023Q4

REPORT INFORMATION
  Report Type: Spontaneous
  Country: GB (occurrence: GB)
  Receive Date: 20230914
  Receipt Date: 20231024
  Transmission Date: 20240110
  Serious: Yes (Other)
  Sender: FDA-Public Use
  Company Number: None

PATIENT
  Age: 49 Year
  Sex: Female
  Weight: 76 kg

DRUGS (7)
  1. DOXYCYCLINE [Suspect]
     Active Substance: DOXYCYCLINE
     Indication: Lyme disease
     Dosage: 100 MG, 2X/DAY
     Dates: start: 20230815
  2. ESTRADERM [Concomitant]
     Active Substance: ESTRADIOL
     Dosage: UNK
  3. UTROGESTAN [Concomitant]
     Active Substance: PROGESTERONE
     Dosage: 100MG 1X/DAY -EACH NIGHT
  4. RAMIPRIL [Concomitant]
     Active Substance: RAMIPRIL
     Indication: Hypertension
     Dosage: UNK
  5. LERCANIDIPINE [Concomitant]
     Active Substance: LERCANIDIPINE
     Indication: Hypertension
     Dosage: UNK
  6. SERTRALINE [Concomitant]
     Active Substance: SERTRALINE HYDROCHLORIDE
     Indication: Family stress
     Dosage: UNK
  7. OMEPRAZOLE [Concomitant]
     Active Substance: OMEPRAZOLE
     Indication: Gastrooesophageal reflux disease
     Dosage: UNK
     Dates: end: 20230828

REACTIONS (10)
  - Photosensitivity reaction [Not Recovered/Not Resolved]
  - Paraesthesia [Not Recovered/Not Resolved]
  - Rash pruritic [Not Recovered/Not Resolved]
  - Sunburn [Not Recovered/Not Resolved]
  - Burning sensation [Unknown]
  - Pain [Unknown]
  - Temperature intolerance [Unknown]
  - Crying [Unknown]
  - Menopause [Unknown]
  - Off label use [Unknown]

NARRATIVE: CASE EVENT DATE: 20230815
